FAERS Safety Report 16404971 (Version 1)
Quarter: 2019Q2

REPORT INFORMATION
  Report Type: Report from Study
  Country: None (occurrence: PT)
  Receive Date: 20190607
  Receipt Date: 20190607
  Transmission Date: 20190711
  Serious: Yes (Life-Threatening, Hospitalization, Congenital Anomaly, Other)
  Sender: FDA-Public Use
  Company Number: PT-ABBVIE-19S-130-2805975-00

PATIENT

DRUGS (11)
  1. COTRIMOXAZOLE [Suspect]
     Active Substance: SULFAMETHOXAZOLE\TRIMETHOPRIM
     Indication: MATERNAL EXPOSURE TIMING UNSPECIFIED
     Route: 064
  2. RITONAVIR. [Suspect]
     Active Substance: RITONAVIR
     Indication: MATERNAL EXPOSURE TIMING UNSPECIFIED
     Route: 064
  3. EMTRICITABINE,TENOFOVIR [Suspect]
     Active Substance: EMTRICITABINE\TENOFOVIR
     Indication: MATERNAL EXPOSURE TIMING UNSPECIFIED
     Route: 064
  4. DOLUTEGRAVIR [Suspect]
     Active Substance: DOLUTEGRAVIR
     Indication: MATERNAL EXPOSURE TIMING UNSPECIFIED
     Route: 064
  5. CALCIUM FOLINATE [Suspect]
     Active Substance: LEUCOVORIN CALCIUM
     Indication: MATERNAL EXPOSURE TIMING UNSPECIFIED
     Route: 064
  6. METILDOPA [Suspect]
     Active Substance: METHYLDOPA
     Indication: MATERNAL EXPOSURE TIMING UNSPECIFIED
     Route: 064
  7. VALGANCICLOVIR. [Suspect]
     Active Substance: VALGANCICLOVIR
     Indication: MATERNAL EXPOSURE TIMING UNSPECIFIED
     Route: 064
  8. DARUNAVIR W/RITONAVIR [Suspect]
     Active Substance: DARUNAVIR\RITONAVIR
     Indication: MATERNAL EXPOSURE TIMING UNSPECIFIED
     Route: 064
  9. PREDNISONE. [Suspect]
     Active Substance: PREDNISONE
     Indication: MATERNAL EXPOSURE TIMING UNSPECIFIED
     Route: 064
  10. OMEPRAZOLE. [Suspect]
     Active Substance: OMEPRAZOLE
     Indication: MATERNAL EXPOSURE TIMING UNSPECIFIED
     Route: 064
  11. DARUNAVIR [Suspect]
     Active Substance: DARUNAVIR
     Indication: MATERNAL EXPOSURE TIMING UNSPECIFIED
     Route: 064

REACTIONS (4)
  - Oesophageal atresia [Not Recovered/Not Resolved]
  - Premature baby [Unknown]
  - Teratogenicity [Not Recovered/Not Resolved]
  - Foetal exposure during pregnancy [Unknown]
